FAERS Safety Report 15328984 (Version 1)
Quarter: 2018Q3

REPORT INFORMATION
  Report Type: Spontaneous
  Country: US (occurrence: US)
  Receive Date: 20180829
  Receipt Date: 20180829
  Transmission Date: 20181010
  Serious: Yes (Other)
  Sender: FDA-Public Use
  Company Number: US-ACCORD-071121

PATIENT
  Age: 37 Year
  Sex: Female

DRUGS (3)
  1. MYCOPHENOLATE MOFETIL/MYCOPHENOLATE SODIUM/MYCOPHENOLIC ACID [Concomitant]
     Dosage: ENTERIC?COATED
     Dates: start: 2012
  2. TACROLIMUS. [Suspect]
     Active Substance: TACROLIMUS
     Indication: PRODUCT USED FOR UNKNOWN INDICATION
     Route: 048
     Dates: start: 2012, end: 2013
  3. PREDNISONE. [Concomitant]
     Active Substance: PREDNISONE
     Dates: start: 2012

REACTIONS (2)
  - Renal impairment [Recovered/Resolved]
  - Toxicity to various agents [Recovered/Resolved]

NARRATIVE: CASE EVENT DATE: 2013
